FAERS Safety Report 8099617-5 (Version None)
Quarter: 2012Q1

REPORT INFORMATION
  Report Type: 
  Country: None (occurrence: None)
  Receive Date: 20120131
  Receipt Date: 20120125
  Transmission Date: 20120608
  Serious: Yes (Other)
  Sender: FDA-Public Use
  Company Number: US-PFIZER INC-2012021352

PATIENT
  Sex: Female

DRUGS (1)
  1. CHANTIX [Suspect]
     Dosage: UNK
     Dates: start: 20120102, end: 20120110

REACTIONS (6)
  - HALLUCINATION [None]
  - MENTAL DISORDER [None]
  - NAUSEA [None]
  - OBSESSIVE THOUGHTS [None]
  - VOMITING [None]
  - SPEECH DISORDER [None]
